FAERS Safety Report 9405555 (Version 2)
Quarter: 2013Q4

REPORT INFORMATION
  Report Type: Spontaneous
  Country: CA (occurrence: None)
  Receive Date: 20130715
  Receipt Date: 20131022
  Transmission Date: 20140711
  Serious: Yes (Disabling)
  Sender: FDA-Public Use
  Company Number: 2013-002205

PATIENT
  Age: 65 Year
  Sex: Female

DRUGS (5)
  1. ACTONEL [Suspect]
     Indication: OSTEOPOROSIS
     Route: 048
     Dates: end: 20121001
  2. RAMIPRIL (RAMIPRIL) [Concomitant]
  3. DETROL (TOLTERODINE L-TARTRATE) [Concomitant]
  4. GLUCOSAMINE-CHONDROITIN MSM (CHONDROTIN SULFATE, GLUCOASMINE, METHYLSULFONYMETHANE) [Concomitant]
  5. ACTONEL (RISEDRONATE SODIUM) TABLET, UNKMG [Suspect]
     Indication: OSTEOPOROSIS
     Route: 048
     Dates: start: 20050301

REACTIONS (8)
  - Pain in jaw [None]
  - Mood altered [None]
  - Knee arthroplasty [None]
  - Condition aggravated [None]
  - Back pain [None]
  - Pain in extremity [None]
  - Arthralgia [None]
  - Pain in extremity [None]
